FAERS Safety Report 9943979 (Version 7)
Quarter: 2015Q1

REPORT INFORMATION
  Report Type: Spontaneous
  Country: DK (occurrence: JP)
  Receive Date: 20140303
  Receipt Date: 20150113
  Transmission Date: 20150721
  Serious: Yes (Life-Threatening, Hospitalization, Other)
  Sender: FDA-Public Use
  Company Number: JP-FRI-1000054770

PATIENT
  Age: 23 Year
  Sex: Female

DRUGS (7)
  1. LEXAPRO [Suspect]
     Active Substance: ESCITALOPRAM OXALATE
     Indication: DEPRESSION
     Dosage: 20 MG
     Route: 048
     Dates: start: 20120409, end: 20140210
  2. KAMISHOYOSAN [Concomitant]
     Indication: DYSMENORRHOEA
     Dosage: 5 MG
     Route: 048
     Dates: start: 20120828, end: 20140210
  3. ALLELOCK [Suspect]
     Active Substance: OLOPATADINE HYDROCHLORIDE
     Dosage: 10 MG
     Route: 048
     Dates: end: 20140210
  4. SEROQUEL [Suspect]
     Active Substance: QUETIAPINE FUMARATE
     Indication: DEPRESSION
     Dosage: 20 MG
     Route: 048
     Dates: end: 20140210
  5. AMOXAN [Suspect]
     Active Substance: AMOXAPINE
     Indication: DEPRESSION
     Dosage: 20 MG
     Route: 048
     Dates: start: 20130827, end: 20140210
  6. BIBITTOACE [Suspect]
     Active Substance: FLUNITRAZEPAM
     Indication: INSOMNIA
     Dosage: 1 MG
     Route: 048
     Dates: end: 20140210
  7. LANDSEN [Suspect]
     Active Substance: CLONAZEPAM
     Indication: DEPRESSION
     Dosage: 0.5 MG
     Route: 048
     Dates: start: 20121120, end: 20140210

REACTIONS (1)
  - Ventricular fibrillation [Recovered/Resolved]

NARRATIVE: CASE EVENT DATE: 20140210
